FAERS Safety Report 7127492-1 (Version None)
Quarter: 2010Q4

REPORT INFORMATION
  Report Type: 
  Country: None (occurrence: None)
  Receive Date: 20101129
  Receipt Date: 20100616
  Transmission Date: 20110411
  Serious: No
  Sender: FDA-Public Use
  Company Number: US-PFIZER INC-2010075841

PATIENT
  Sex: Male
  Weight: 118 kg

DRUGS (7)
  1. VIAGRA [Suspect]
     Indication: ERECTILE DYSFUNCTION
     Dosage: 100 MG, AS NEEDED
     Route: 048
     Dates: start: 20070101
  2. ACTOS [Concomitant]
     Indication: DIABETES MELLITUS
     Dosage: 45 MG, 1X/DAY
  3. SITAGLIPTIN [Concomitant]
     Indication: DIABETES MELLITUS
     Dosage: 100 MG, 1X/DAY
  4. METFORMIN [Concomitant]
     Indication: DIABETES MELLITUS
     Dosage: 1000 MG, 2X/DAY
  5. FENOFIBRIC ACID [Concomitant]
     Indication: DIABETES MELLITUS
     Dosage: UNK
  6. VYTORIN [Concomitant]
     Dosage: 80 MG, DAILY
  7. GLIPIZIDE [Concomitant]
     Dosage: 10 MG, 2X/DAY

REACTIONS (1)
  - DRUG INEFFECTIVE [None]
